FAERS Safety Report 10688246 (Version 1)
Quarter: 2014Q4

REPORT INFORMATION
  Report Type: Spontaneous
  Country: JP (occurrence: None)
  Receive Date: 20141231
  Receipt Date: 20141231
  Transmission Date: 20150529
  Serious: Yes (Hospitalization)
  Sender: FDA-Public Use
  Company Number: JP2014JPN018721

PATIENT
  Age: 23 Year
  Sex: Female
  Weight: 55 kg

DRUGS (3)
  1. LEXIVA [Suspect]
     Active Substance: FOSAMPRENAVIR CALCIUM
     Indication: HIV INFECTION
     Route: 048
     Dates: start: 20141022, end: 20141107
  2. RITONAVIR. [Concomitant]
     Active Substance: RITONAVIR
  3. EPZICOM [Suspect]
     Active Substance: ABACAVIR SULFATE\LAMIVUDINE
     Indication: HIV INFECTION
     Route: 048
     Dates: start: 20141003, end: 20141107

REACTIONS (4)
  - Drug eruption [None]
  - Drug hypersensitivity [None]
  - Erythema [None]
  - HLA marker study positive [None]

NARRATIVE: CASE EVENT DATE: 20141107
